FAERS Safety Report 5489531-3 (Version None)
Quarter: 2007Q4

REPORT INFORMATION
  Report Type: 
  Country: None (occurrence: None)
  Receive Date: 20071016
  Receipt Date: 20071016
  Transmission Date: 20080405
  Serious: Yes (Life-Threatening)
  Sender: FDA-Public Use
  Company Number: None

PATIENT
  Age: 76 Year
  Sex: Female
  Weight: 60.1 kg

DRUGS (9)
  1. LORAZEPAM [Suspect]
     Indication: STATUS EPILEPTICUS
     Dosage: 1 MG PRN IV BOLUS 2 MG PRN IV BOLUS
     Route: 040
     Dates: start: 20070519, end: 20070519
  2. LORAZEPAM [Suspect]
     Indication: STATUS EPILEPTICUS
     Dosage: 1 MG PRN IV BOLUS 2 MG PRN IV BOLUS
     Route: 040
     Dates: start: 20070519, end: 20070519
  3. DILTIAZEM [Concomitant]
  4. ENOXAPARIN SODIUM [Concomitant]
  5. WARFARIN SODIUM [Concomitant]
  6. VANCOMYCIN [Concomitant]
  7. PANTOPRAZOLE SODIUM [Concomitant]
  8. FOSPHENYTOIN [Concomitant]
  9. PHENYTOIN [Concomitant]

REACTIONS (9)
  - ATRIAL FIBRILLATION [None]
  - CARDIAC FAILURE CONGESTIVE [None]
  - DYSPHAGIA [None]
  - ENCEPHALOPATHY [None]
  - HEPATIC CIRRHOSIS [None]
  - MITRAL VALVE INCOMPETENCE [None]
  - RENAL FAILURE ACUTE [None]
  - RESPIRATORY DEPRESSION [None]
  - RESPIRATORY FAILURE [None]
